FAERS Safety Report 6854174-3 (Version None)
Quarter: 2010Q3

REPORT INFORMATION
  Report Type: 
  Country: None (occurrence: None)
  Receive Date: 20100717
  Receipt Date: 20080122
  Transmission Date: 20110219
  Serious: No
  Sender: FDA-Public Use
  Company Number: US-PFIZER INC-2008000610

PATIENT
  Sex: Male

DRUGS (7)
  1. CHANTIX [Suspect]
     Indication: SMOKING CESSATION THERAPY
     Dates: start: 20071216
  2. VITAMIN B-12 [Concomitant]
  3. METFORMIN HCL [Concomitant]
  4. SITAGLIPTIN [Concomitant]
  5. GLIPIZIDE [Concomitant]
  6. TRICOR [Concomitant]
  7. ZETIA [Concomitant]

REACTIONS (5)
  - BACK PAIN [None]
  - MIDDLE INSOMNIA [None]
  - NAUSEA [None]
  - SENSATION OF FOREIGN BODY [None]
  - VOMITING [None]
